FAERS Safety Report 25892114 (Version 1)
Quarter: 2025Q4

REPORT INFORMATION
  Report Type: Report from Study
  Country: IL (occurrence: IL)
  Receive Date: 20251007
  Receipt Date: 20251007
  Transmission Date: 20260118
  Serious: Yes (Hospitalization)
  Sender: TAKEDA
  Company Number: IL-TAKEDA-2023TUS121553

PATIENT
  Age: 8 Year
  Sex: Female

DRUGS (2)
  1. HUMAN IMMUNOGLOBULIN G\HYALURONIDASE RECOMBINANT HUMAN [Suspect]
     Active Substance: HUMAN IMMUNOGLOBULIN G\HYALURONIDASE (HUMAN RECOMBINANT)
     Indication: Primary immunodeficiency syndrome
     Dosage: 10 GRAM, 3/WEEK
     Dates: start: 20230119
  2. HUMAN IMMUNOGLOBULIN G\HYALURONIDASE RECOMBINANT HUMAN [Suspect]
     Active Substance: HUMAN IMMUNOGLOBULIN G\HYALURONIDASE (HUMAN RECOMBINANT)
     Dosage: 12.5 GRAM, Q3WEEKS

REACTIONS (3)
  - Gastrointestinal infection [Unknown]
  - Apathy [Unknown]
  - Oxygen saturation decreased [Unknown]
